FAERS Safety Report 7361318-6 (Version None)
Quarter: 2011Q1

REPORT INFORMATION
  Report Type: 
  Country: None (occurrence: None)
  Receive Date: 20110318
  Receipt Date: 20110310
  Transmission Date: 20110831
  Serious: Yes (Death, Hospitalization)
  Sender: FDA-Public Use
  Company Number: B0699006A

PATIENT
  Sex: Male

DRUGS (7)
  1. CELSENTRI [Suspect]
     Dosage: 150MG TWICE PER DAY
     Route: 048
     Dates: start: 20101120
  2. ZIDOVUDINE [Concomitant]
  3. ETRAVIRINE [Concomitant]
  4. KALETRA [Concomitant]
  5. DARUNAVIR [Suspect]
     Route: 065
     Dates: start: 20101120
  6. RITONAVIR [Suspect]
     Route: 065
     Dates: start: 20101120
  7. RALTEGRAVIR [Concomitant]

REACTIONS (5)
  - PULMONARY EMBOLISM [None]
  - BRONCHOPNEUMONIA [None]
  - MALAISE [None]
  - CHEST PAIN [None]
  - DYSPNOEA [None]
